FAERS Safety Report 15106335 (Version 4)
Quarter: 2018Q3

REPORT INFORMATION
  Report Type: Spontaneous
  Country: JP (occurrence: JP)
  Receive Date: 20180704
  Receipt Date: 20180822
  Transmission Date: 20181010
  Serious: Yes (Other)
  Sender: FDA-Public Use
  Company Number: JP-PFIZER INC-2018268646

PATIENT
  Age: 74 Year
  Sex: Female

DRUGS (4)
  1. ASPIRIN. [Concomitant]
     Active Substance: ASPIRIN
     Indication: CEREBRAL INFARCTION
     Dosage: 100 MG, 1X/DAY (IN THE MORNING)
     Route: 048
  2. QUETIAPINE FUMARATE. [Suspect]
     Active Substance: QUETIAPINE FUMARATE
     Dosage: 25 MG, 1X/DAY (BEFORE SLEEPING)
     Route: 048
  3. AMLODIPINE BESILATE [Suspect]
     Active Substance: AMLODIPINE BESYLATE
     Indication: HYPERTENSION
     Dosage: 5 MG, 1X/DAY (IN THE MORNING)
     Route: 048
  4. ETIZOLAM [Suspect]
     Active Substance: ETIZOLAM
     Indication: NEUROPSYCHIATRIC SYMPTOMS
     Dosage: 0.25 MG, 1X/DAY (BEFORE BED)
     Route: 048

REACTIONS (4)
  - Pulmonary embolism [Unknown]
  - Fall [Unknown]
  - Oedema [Unknown]
  - Compression fracture [Unknown]
